FAERS Safety Report 25955321 (Version 1)
Quarter: 2025Q4

REPORT INFORMATION
  Report Type: Report from Study
  Country: US (occurrence: US)
  Receive Date: 20251024
  Receipt Date: 20251024
  Transmission Date: 20260117
  Serious: Yes (Hospitalization, Other)
  Sender: IPSEN BIOPHARMACEUTICALS, INC.
  Company Number: US-IPSEN Group, Research and Development-2023-17983

PATIENT
  Age: 75 Year
  Sex: Female
  Weight: 58 kg

DRUGS (38)
  1. ONIVYDE [Suspect]
     Active Substance: IRINOTECAN HYDROCHLORIDE
     Indication: Bile duct cancer
     Route: 042
     Dates: start: 20230630
  2. ONIVYDE [Suspect]
     Active Substance: IRINOTECAN HYDROCHLORIDE
     Route: 042
     Dates: start: 20230714
  3. ONIVYDE [Suspect]
     Active Substance: IRINOTECAN HYDROCHLORIDE
     Dosage: OVER 90 MINUTES EVERY 14 DAYS
     Route: 042
     Dates: start: 20230630, end: 20230804
  4. ONIVYDE [Suspect]
     Active Substance: IRINOTECAN HYDROCHLORIDE
     Dosage: OVER 90 MINUTES EVERY 14 DAYS
     Route: 042
     Dates: start: 20230811, end: 20230929
  5. ONIVYDE [Suspect]
     Active Substance: IRINOTECAN HYDROCHLORIDE
     Dosage: OVER 90 MINUTES EVERY 14 DAYS
     Route: 042
     Dates: start: 20230929
  6. LEUCOVORIN [Suspect]
     Active Substance: LEUCOVORIN\LEUCOVORIN CALCIUM
     Indication: Biliary cancer metastatic
     Route: 042
     Dates: start: 20230630, end: 20230630
  7. LEUCOVORIN [Suspect]
     Active Substance: LEUCOVORIN\LEUCOVORIN CALCIUM
     Route: 042
     Dates: start: 20230714, end: 20230714
  8. LEUCOVORIN [Suspect]
     Active Substance: LEUCOVORIN\LEUCOVORIN CALCIUM
     Dosage: OVER 30 MINUTES EVERY 14 DAYS
     Route: 042
     Dates: start: 20230630, end: 20230804
  9. LEUCOVORIN [Suspect]
     Active Substance: LEUCOVORIN\LEUCOVORIN CALCIUM
     Dosage: OVER 30 MINUTES EVERY 14 DAYS
     Route: 042
     Dates: start: 20230811, end: 20230929
  10. LEUCOVORIN [Suspect]
     Active Substance: LEUCOVORIN\LEUCOVORIN CALCIUM
     Dosage: OVER 30 MINUTES EVERY 14 DAYS
     Route: 042
     Dates: start: 20230929
  11. FLUOROURACIL [Suspect]
     Active Substance: FLUOROURACIL
     Indication: Biliary cancer metastatic
     Route: 042
     Dates: start: 20230630, end: 20230630
  12. FLUOROURACIL [Suspect]
     Active Substance: FLUOROURACIL
     Route: 042
     Dates: start: 20230714, end: 20230716
  13. FLUOROURACIL [Suspect]
     Active Substance: FLUOROURACIL
     Dosage: OVER 46 HOURS EVERY 14 DAYS
     Route: 042
     Dates: start: 20230630, end: 20230804
  14. FLUOROURACIL [Suspect]
     Active Substance: FLUOROURACIL
     Dosage: OVER 46 HOURS EVERY 14 DAYS
     Route: 042
     Dates: start: 20230811, end: 20230929
  15. FLUOROURACIL [Suspect]
     Active Substance: FLUOROURACIL
     Dosage: OVER 46 HOURS EVERY 14 DAYS
     Route: 042
     Dates: start: 20230929
  16. TYLENOL [Concomitant]
     Active Substance: ACETAMINOPHEN
     Indication: Pain
     Dosage: PRN
     Route: 048
     Dates: start: 20000101
  17. ELIQUIS [Concomitant]
     Active Substance: APIXABAN
     Indication: Prophylaxis
     Dosage: BID
     Route: 048
     Dates: start: 20230327
  18. OSCAL [Concomitant]
     Active Substance: CALCIUM CARBONATE
     Indication: Supplementation therapy
     Dosage: 600 MILLIGRAM, PO, QD
     Route: 048
     Dates: start: 19900101
  19. VITAMIN D3 [Concomitant]
     Active Substance: CHOLECALCIFEROL
     Indication: Supplementation therapy
     Dosage: QD
     Route: 048
     Dates: start: 20050101
  20. NEXIUM [Concomitant]
     Active Substance: ESOMEPRAZOLE MAGNESIUM
     Indication: Dyspepsia
     Dosage: BID
     Route: 048
     Dates: start: 19900101
  21. FISH OIL [Concomitant]
     Active Substance: FISH OIL
     Indication: Supplementation therapy
     Dosage: QD
     Route: 048
     Dates: start: 19900101
  22. NEURONTIN [Concomitant]
     Active Substance: GABAPENTIN
     Indication: Neuropathy peripheral
     Dosage: BID
     Route: 048
     Dates: start: 20000107
  23. CLARITIN [Concomitant]
     Active Substance: LORATADINE
     Indication: Hypersensitivity
     Dosage: PRN
     Route: 048
     Dates: start: 20210101
  24. MAGNESIUM OXIDE [Concomitant]
     Active Substance: MAGNESIUM OXIDE
     Indication: Supplementation therapy
     Dosage: QD
     Route: 048
     Dates: start: 19900101
  25. MELATONIN [Concomitant]
     Active Substance: MELATONIN
     Indication: Prophylaxis
     Dosage: QD
     Route: 048
     Dates: start: 20000101
  26. ZOFRAN [Concomitant]
     Active Substance: ONDANSETRON HYDROCHLORIDE
     Indication: Nausea
     Dosage: PRN
     Route: 048
     Dates: start: 20220501
  27. MIRALAX [Concomitant]
     Active Substance: POLYETHYLENE GLYCOL 3350
     Indication: Constipation
     Dosage: QD
     Route: 048
     Dates: start: 20220501
  28. POTASSIUM [Concomitant]
     Active Substance: POTASSIUM
     Indication: Supplementation therapy
     Dosage: QD
     Route: 048
     Dates: start: 20220102
  29. COMPAZINE [Concomitant]
     Active Substance: PROCHLORPERAZINE MALEATE
     Indication: Nausea
     Dosage: PRN
     Route: 048
     Dates: start: 20220106
  30. GAS-X [Concomitant]
     Active Substance: DIMETHICONE
     Indication: Abdominal distension
     Dosage: PRN
     Route: 048
     Dates: start: 20220601
  31. ZOCOR [Concomitant]
     Active Substance: SIMVASTATIN
     Indication: Blood cholesterol increased
     Dosage: QD
     Route: 048
     Dates: start: 20000101
  32. RESTORIL [Concomitant]
     Active Substance: TEMAZEPAM
     Indication: Insomnia
     Dosage: PRN
     Route: 048
     Dates: start: 20230101
  33. ULTRAM [Concomitant]
     Active Substance: TRAMADOL HYDROCHLORIDE
     Indication: Pain
     Dosage: PRN
     Route: 048
     Dates: start: 20220101
  34. COENZYME Q10 [Concomitant]
     Active Substance: DIETARY SUPPLEMENT\UBIDECARENONE
     Indication: Supplementation therapy
     Dosage: QD
     Route: 048
     Dates: start: 20220601
  35. DITROPAN [Concomitant]
     Active Substance: OXYBUTYNIN CHLORIDE
     Indication: Bladder spasm
     Dosage: 5 MG TID
     Route: 048
     Dates: start: 20230630
  36. ROXICODONE [Concomitant]
     Active Substance: OXYCODONE HYDROCHLORIDE
     Indication: Pain
     Dates: start: 20230825
  37. CIPRO [Concomitant]
     Active Substance: CIPROFLOXACIN HYDROCHLORIDE
     Indication: Abdominal infection
     Dosage: 500 MG BID
     Route: 048
  38. FLAGYL [Concomitant]
     Active Substance: METRONIDAZOLE\METRONIDAZOLE HYDROCHLORIDE
     Indication: Abdominal infection
     Dosage: 500 MG TID
     Route: 048

REACTIONS (4)
  - Upper gastrointestinal haemorrhage [Recovering/Resolving]
  - Sepsis [Recovering/Resolving]
  - Febrile neutropenia [Unknown]
  - Diarrhoea [Recovering/Resolving]

NARRATIVE: CASE EVENT DATE: 20230717
